FAERS Safety Report 5488782-1 (Version None)
Quarter: 2007Q4

REPORT INFORMATION
  Report Type: 
  Country: None (occurrence: None)
  Receive Date: 20071017
  Receipt Date: 20071009
  Transmission Date: 20080405
  Serious: Yes (Hospitalization)
  Sender: FDA-Public Use
  Company Number: MY-MERCK-0710MYS00005

PATIENT
  Age: 53 Year
  Sex: Female

DRUGS (1)
  1. HYZAAR [Suspect]
     Indication: HYPERTENSION
     Route: 065
     Dates: start: 20070605

REACTIONS (2)
  - DERMATITIS ALLERGIC [None]
  - INAPPROPRIATE SCHEDULE OF DRUG ADMINISTRATION [None]
